FAERS Safety Report 9434261 (Version 1)
Quarter: 2013Q3

REPORT INFORMATION
  Report Type: Spontaneous
  Country: JP (occurrence: JP)
  Receive Date: 20130801
  Receipt Date: 20130801
  Transmission Date: 20140515
  Serious: Yes (Other)
  Sender: FDA-Public Use
  Company Number: PHHY2013JP081215

PATIENT
  Sex: Female

DRUGS (2)
  1. DIOVAN [Suspect]
     Dosage: 2 DF, DAILY
     Route: 048
  2. DIOVAN [Suspect]
     Dosage: 1 DF, DAILY
     Route: 048

REACTIONS (4)
  - Rib fracture [Unknown]
  - Pleural effusion [Unknown]
  - Dizziness [Unknown]
  - Drug ineffective [Unknown]
